FAERS Safety Report 19231817 (Version 1)
Quarter: 2021Q2

REPORT INFORMATION
  Report Type: Spontaneous
  Country: US (occurrence: US)
  Receive Date: 20210507
  Receipt Date: 20210507
  Transmission Date: 20210717
  Serious: Yes (Hospitalization)
  Sender: FDA-Public Use
  Company Number: US-MYLANLABS-2021M1026459

PATIENT
  Age: 4 Year
  Sex: Male

DRUGS (2)
  1. SODIUM BICARBONATE. [Suspect]
     Active Substance: SODIUM BICARBONATE
     Indication: SUPRAVENTRICULAR TACHYCARDIA
     Dosage: MULTIPLE BOLUSES OF 1 MEQ/KG; BOLUS
  2. LIDOCAINE. [Suspect]
     Active Substance: LIDOCAINE
     Dosage: UNK; BOLUS

REACTIONS (1)
  - Drug ineffective [Unknown]
